FAERS Safety Report 13603674 (Version 1)
Quarter: 2017Q2

REPORT INFORMATION
  Report Type: Spontaneous
  Country: FI (occurrence: FI)
  Receive Date: 20170601
  Receipt Date: 20170601
  Transmission Date: 20170830
  Serious: Yes (Life-Threatening)
  Sender: FDA-Public Use
  Company Number: FI-MYLANLABS-2017M1032185

PATIENT

DRUGS (5)
  1. NASOLIN                            /00109602/ [Concomitant]
     Indication: NASAL OEDEMA
     Dosage: 1 DF, TID
  2. NASONEX [Concomitant]
     Active Substance: MOMETASONE FUROATE
     Indication: PRODUCT USED FOR UNKNOWN INDICATION
     Dosage: UNK
  3. AERIUS [Concomitant]
     Active Substance: DESLORATADINE
     Indication: HYPERSENSITIVITY
     Dosage: 1 DF, QD
  4. PRECOSA [Concomitant]
     Indication: DIARRHOEA
     Dosage: 1 DF, BID
     Route: 048
  5. ZECLAR 50 MG/ML, GRANUL?S POUR SUSPENSION BUVABLE [Suspect]
     Active Substance: CLARITHROMYCIN
     Indication: ACUTE SINUSITIS
     Dosage: 3.8 ML, BID
     Dates: start: 20170513, end: 20170514

REACTIONS (1)
  - Hypoglycaemia [Recovered/Resolved]

NARRATIVE: CASE EVENT DATE: 20170513
